FAERS Safety Report 10066964 (Version 1)
Quarter: 2014Q2

REPORT INFORMATION
  Report Type: Spontaneous
  Country: GB (occurrence: GB)
  Receive Date: 20140409
  Receipt Date: 20140409
  Transmission Date: 20141212
  Serious: Yes (Other)
  Sender: FDA-Public Use
  Company Number: GB-PFIZER INC-2014097603

PATIENT
  Age: 29 Year
  Sex: Female

DRUGS (6)
  1. METHYLPREDNISOLONE [Suspect]
     Indication: MULTIPLE SCLEROSIS RELAPSE
     Dosage: UNK G, UNK
     Route: 042
  2. METHYLPREDNISOLONE [Suspect]
     Dosage: SECOND COURSE (10 WEEKS INTO THE PREGNANCY) 1 G, 1X/DAY
     Route: 042
     Dates: start: 20140323, end: 20140325
  3. CYCLIZINE [Concomitant]
  4. ENOXAPARIN [Concomitant]
  5. FOLIC ACID [Concomitant]
  6. LORATADINE [Concomitant]

REACTIONS (1)
  - Abortion spontaneous [Recovered/Resolved]
